FAERS Safety Report 4844966-4 (Version None)
Quarter: 2005Q4

REPORT INFORMATION
  Report Type: 
  Country: None (occurrence: None)
  Receive Date: 20051129
  Receipt Date: 20051117
  Transmission Date: 20060501
  Serious: Yes (Other)
  Sender: FDA-Public Use
  Company Number: 2005158124

PATIENT
  Age: 19 Year
  Sex: Female

DRUGS (2)
  1. CELEBREX [Suspect]
     Indication: WHIPLASH INJURY
     Dosage: (2 IN 1 D), ORAL
     Route: 048
     Dates: start: 20050906, end: 20050920
  2. CONTRACEPTIVE, UNSPECIFIED (CONTRACEPTIVE, UNSPECIFIED) [Concomitant]

REACTIONS (1)
  - UTERINE HAEMORRHAGE [None]
